FAERS Safety Report 4817320-9 (Version None)
Quarter: 2005Q4

REPORT INFORMATION
  Report Type: 
  Country: None (occurrence: None)
  Receive Date: 20051101
  Receipt Date: 20051021
  Transmission Date: 20060501
  Serious: Yes (Other)
  Sender: FDA-Public Use
  Company Number: PHBS2005AU15616

PATIENT
  Age: 36 Year
  Sex: Female

DRUGS (14)
  1. CYCLOSPORINE [Suspect]
     Indication: BONE MARROW TRANSPLANT
     Dates: start: 20020201
  2. CYCLOSPORINE [Suspect]
     Dosage: 50 MG, BID
  3. CYCLOSPORINE [Suspect]
     Dosage: 150 MG, BID
     Dates: start: 20031001
  4. NIFEDIPINE [Suspect]
  5. METHOTREXATE [Suspect]
     Indication: BONE MARROW TRANSPLANT
     Route: 065
  6. BUSULFAN [Suspect]
     Indication: BONE MARROW TRANSPLANT
  7. CYCLOPHOSPHAMIDE [Suspect]
     Indication: BONE MARROW TRANSPLANT
  8. PREDNISOLONE [Suspect]
     Indication: BONE MARROW TRANSPLANT
  9. LEVONORGESTREL AND ETHINYL ESTRADIOL [Concomitant]
     Route: 048
  10. ESTROGEN NOS [Concomitant]
     Route: 067
  11. TRANDOLAPRIL [Concomitant]
  12. ACYCLOVIR [Concomitant]
  13. MYCOPHENOLATE MOFETIL [Concomitant]
  14. COTRIMOXAZOL ^ALIUD^ [Concomitant]

REACTIONS (26)
  - BLOOD GASES ABNORMAL [None]
  - BLOOD IMMUNOGLOBULIN A DECREASED [None]
  - C-REACTIVE PROTEIN INCREASED [None]
  - CYSTITIS HAEMORRHAGIC [None]
  - DIARRHOEA [None]
  - DILATATION VENTRICULAR [None]
  - DYSPNOEA [None]
  - EXERCISE TOLERANCE DECREASED [None]
  - FLUID RETENTION [None]
  - FORCED EXPIRATORY VOLUME DECREASED [None]
  - GRAFT VERSUS HOST DISEASE [None]
  - HEPATIC ENZYME ABNORMAL [None]
  - HYPERTENSION [None]
  - LUNG DISORDER [None]
  - MUCOSAL INFLAMMATION [None]
  - NAUSEA [None]
  - NEPHROPATHY TOXIC [None]
  - OBLITERATIVE BRONCHIOLITIS [None]
  - OEDEMA PERIPHERAL [None]
  - PULMONARY HYPERTENSION [None]
  - RED BLOOD CELL SEDIMENTATION RATE INCREASED [None]
  - RENAL IMPAIRMENT [None]
  - RIGHT VENTRICULAR SYSTOLIC PRESSURE DECREASED [None]
  - SYNCOPE [None]
  - TRICUSPID VALVE INCOMPETENCE [None]
  - VENOUS PRESSURE JUGULAR INCREASED [None]
